FAERS Safety Report 11031377 (Version 2)
Quarter: 2015Q2

REPORT INFORMATION
  Report Type: Spontaneous
  Country: US (occurrence: US)
  Receive Date: 20150415
  Receipt Date: 20150421
  Transmission Date: 20150821
  Serious: No
  Sender: FDA-Public Use
  Company Number: US-PFIZER INC-2015124847

PATIENT
  Age: 67 Year
  Sex: Female
  Weight: 70.75 kg

DRUGS (3)
  1. LYRICA [Suspect]
     Active Substance: PREGABALIN
     Indication: NEURALGIA
     Dosage: 50 MG, 1X/DAY
     Route: 048
     Dates: start: 20150404, end: 20150404
  2. CELEXA [Concomitant]
     Active Substance: CITALOPRAM HYDROBROMIDE
     Dosage: ONE THE NIGHT
  3. ATIVAN [Concomitant]
     Active Substance: LORAZEPAM
     Dosage: A HALF OF MG

REACTIONS (8)
  - Blood pressure increased [Unknown]
  - Euphoric mood [Recovering/Resolving]
  - Snoring [Recovered/Resolved]
  - Feeling drunk [Recovering/Resolving]
  - Inappropriate affect [Recovered/Resolved]
  - Insomnia [Recovering/Resolving]
  - Dysarthria [Recovering/Resolving]
  - Dysgraphia [Recovering/Resolving]

NARRATIVE: CASE EVENT DATE: 20150404
